FAERS Safety Report 25375436 (Version 1)
Quarter: 2025Q2

REPORT INFORMATION
  Report Type: Spontaneous
  Country: ES (occurrence: ES)
  Receive Date: 20250529
  Receipt Date: 20250529
  Transmission Date: 20250716
  Serious: Yes (Other)
  Sender: MYLAN
  Company Number: ES-KERNPHARMA-202501433

PATIENT
  Age: 18 Year
  Sex: Female
  Weight: 81.8 kg

DRUGS (3)
  1. FLUTICASONE PROPIONATE\SALMETEROL XINAFOATE [Suspect]
     Active Substance: FLUTICASONE PROPIONATE\SALMETEROL XINAFOATE
     Indication: Asthma
     Dosage: 1 DOSAGE FORM, BID
  2. MONTELUKAST [Concomitant]
     Active Substance: MONTELUKAST
     Dosage: 10 MILLIGRAM, QD
  3. DIENOGEST\ETHINYL ESTRADIOL [Concomitant]
     Active Substance: DIENOGEST\ETHINYL ESTRADIOL
     Dosage: 1 DOSAGE FORM, QD ( (DIENOGEST/ETHINYLESTRADIOL 2/0.03 MG, 1 TABLET EVERY 24 HOURS))

REACTIONS (2)
  - Pseudo Cushing^s syndrome [Recovering/Resolving]
  - Secondary adrenocortical insufficiency [Recovered/Resolved]
